FAERS Safety Report 4988915-7 (Version None)
Quarter: 2006Q2

REPORT INFORMATION
  Report Type: 
  Country: None (occurrence: None)
  Receive Date: 20060502
  Receipt Date: 20060421
  Transmission Date: 20061013
  Serious: Yes (Other)
  Sender: FDA-Public Use
  Company Number: US-JNJFOC-20060203391

PATIENT
  Sex: Female
  Weight: 101.61 kg

DRUGS (5)
  1. REMICADE [Suspect]
     Route: 042
  2. REMICADE [Suspect]
     Indication: PSORIASIS
     Route: 042
  3. THYROID TAB [Concomitant]
     Indication: HYPOTHYROIDISM
  4. BENICAR [Concomitant]
  5. MOBIC [Concomitant]
     Indication: PAIN

REACTIONS (2)
  - PSORIASIS [None]
  - SURGERY [None]
